FAERS Safety Report 8848162 (Version 1)
Quarter: 2012Q4

REPORT INFORMATION
  Report Type: 
  Country: CO (occurrence: CO)
  Receive Date: 20121018
  Receipt Date: 20121018
  Transmission Date: 20130627
  Serious: Yes (Life-Threatening)
  Sender: FDA-Public Use
  Company Number: CO-SANOFI-AVENTIS-2012SA075335

PATIENT
  Age: 5 Year
  Sex: Female

DRUGS (3)
  1. LANTUS [Suspect]
     Indication: TYPE 1 DIABETES MELLITUS
     Dosage: Dose:8 unit(s)
     Route: 058
     Dates: start: 2004
  2. LANTUS [Suspect]
     Indication: TYPE 1 DIABETES MELLITUS
     Route: 058
  3. APIDRA [Concomitant]
     Indication: TYPE 1 DIABETES MELLITUS
     Dosage: Dose:3 unit(s)
     Route: 058
     Dates: start: 2004

REACTIONS (2)
  - Diabetic ketoacidosis [Unknown]
  - Hyperglycaemia [Unknown]
